FAERS Safety Report 6385552-7 (Version None)
Quarter: 2009Q4

REPORT INFORMATION
  Report Type: 
  Country: None (occurrence: None)
  Receive Date: 20091002
  Receipt Date: 20080924
  Transmission Date: 20100525
  Serious: No
  Sender: FDA-Public Use
  Company Number: US-ASTRAZENECA-2008UW20187

PATIENT
  Age: 64 Year
  Sex: Female

DRUGS (4)
  1. ARIMIDEX [Suspect]
     Dosage: 1MG
     Route: 048
  2. MOTRIN [Concomitant]
  3. AMDRY GENERIC ALLERGY [Concomitant]
  4. FOSAMAX [Concomitant]

REACTIONS (2)
  - ARTHRALGIA [None]
  - TENDONITIS [None]
